FAERS Safety Report 14448986 (Version 1)
Quarter: 2018Q1

REPORT INFORMATION
  Report Type: Spontaneous
  Country: IT (occurrence: IT)
  Receive Date: 20180126
  Receipt Date: 20180126
  Transmission Date: 20180509
  Serious: Yes (Other)
  Sender: FDA-Public Use
  Company Number: IT-NOVAST LABORATORIES, LTD-IT-2018NOV000008

PATIENT
  Age: 18 Year
  Sex: Female

DRUGS (1)
  1. CARISOPRODOL\ASPIRIN [Suspect]
     Active Substance: ASPIRIN\CARISOPRODOL
     Indication: PRODUCT USED FOR UNKNOWN INDICATION

REACTIONS (5)
  - Conjunctivitis [Recovered/Resolved]
  - Madarosis [Unknown]
  - Toxic epidermal necrolysis [Recovered/Resolved]
  - Meibomian gland dysfunction [Unknown]
  - Ulcerative keratitis [Recovered/Resolved]
